FAERS Safety Report 14253403 (Version 2)
Quarter: 2017Q4

REPORT INFORMATION
  Report Type: Report from Study
  Country: US (occurrence: US)
  Receive Date: 20171205
  Receipt Date: 20171218
  Transmission Date: 20180321
  Serious: Yes (Other)
  Sender: FDA-Public Use
  Company Number: US-PFIZER INC-2017469710

PATIENT
  Age: 49 Year
  Sex: Female

DRUGS (4)
  1. IBRANCE [Suspect]
     Active Substance: PALBOCICLIB
     Dosage: 100 MG, CYCLIC (ONCE DAILY FOR 2 WEEKS ON, THEN 1 WEEKS OFF)
     Route: 048
     Dates: start: 20171127
  2. IBRANCE [Suspect]
     Active Substance: PALBOCICLIB
     Dosage: 125 MG, ALTERNATE DAY (EVERY OTHER DAY)
     Route: 048
     Dates: start: 201710, end: 20171023
  3. IBRANCE [Suspect]
     Active Substance: PALBOCICLIB
     Dosage: 100 MG, CYCLIC (21 DAYS/ 7 DAYS OFF)
     Route: 048
     Dates: start: 20171107, end: 20171121
  4. IBRANCE [Suspect]
     Active Substance: PALBOCICLIB
     Indication: BREAST CANCER
     Dosage: 125 MG, CYCLIC (21 DAYS/7 DAYS OFF)
     Route: 048
     Dates: start: 20171011, end: 20171024

REACTIONS (16)
  - Bone marrow failure [Unknown]
  - Pain in extremity [Recovering/Resolving]
  - Constipation [Unknown]
  - Neutropenia [Unknown]
  - White blood cell count decreased [Not Recovered/Not Resolved]
  - Fatigue [Unknown]
  - Leukopenia [Unknown]
  - Pruritus [Unknown]
  - Diarrhoea [Unknown]
  - Muscle spasms [Recovered/Resolved]
  - Condition aggravated [Recovering/Resolving]
  - Pelvic pain [Unknown]
  - Nausea [Unknown]
  - Headache [Unknown]
  - Upper respiratory tract congestion [Unknown]
  - Vomiting [Unknown]

NARRATIVE: CASE EVENT DATE: 2017
